FAERS Safety Report 16159250 (Version 2)
Quarter: 2021Q4

REPORT INFORMATION
  Report Type: Spontaneous
  Country: CA (occurrence: CA)
  Receive Date: 20190404
  Receipt Date: 20211224
  Transmission Date: 20220303
  Serious: Yes (Hospitalization, Other)
  Sender: FDA-Public Use
  Company Number: CA-PURDUE PHARMA-CAN-2019-0009861

PATIENT
  Age: 47 Year
  Sex: Male

DRUGS (13)
  1. MORPHINE SULFATE [Suspect]
     Active Substance: MORPHINE SULFATE
     Indication: Product used for unknown indication
     Dosage: UNK
     Route: 065
  2. HYDROMORPHONE HYDROCHLORIDE [Suspect]
     Active Substance: HYDROMORPHONE HYDROCHLORIDE
     Indication: Product used for unknown indication
     Dosage: UNKNOWN
     Route: 065
  3. SANDOSTATIN [Suspect]
     Active Substance: OCTREOTIDE ACETATE
     Indication: Metastatic carcinoid tumour
     Dosage: 30 MG, MONTHLY
     Route: 030
  4. SANDOSTATIN [Suspect]
     Active Substance: OCTREOTIDE ACETATE
     Dosage: 20 MG, MONTHLY
     Route: 030
  5. SANDOSTATIN [Suspect]
     Active Substance: OCTREOTIDE ACETATE
     Dosage: 30 MG, UNK
     Route: 030
  6. SANDOSTATIN [Suspect]
     Active Substance: OCTREOTIDE ACETATE
     Dosage: 100 MCG, TID
     Route: 058
  7. SANDOSTATIN [Suspect]
     Active Substance: OCTREOTIDE ACETATE
     Dosage: 20 MG, MONTHLY
     Route: 030
  8. SANDOSTATIN [Suspect]
     Active Substance: OCTREOTIDE ACETATE
     Dosage: 30 MG, UNK
     Route: 030
  9. SANDOSTATIN [Suspect]
     Active Substance: OCTREOTIDE ACETATE
     Dosage: 100 MCG, TID
     Route: 058
  10. PANCREATIN [Concomitant]
     Active Substance: PANCRELIPASE
     Dosage: UNKNOWN
     Route: 065
  11. PANTOPRAZOLE [Concomitant]
     Active Substance: PANTOPRAZOLE
     Dosage: UNKNOWN
     Route: 065
  12. VENLAFAXINE [Concomitant]
     Active Substance: VENLAFAXINE HYDROCHLORIDE
     Dosage: UNKNOWN
     Route: 065
  13. WARFARIN [Concomitant]
     Active Substance: WARFARIN
     Dosage: UNKNOWN
     Route: 065

REACTIONS (19)
  - Injection site pain [Unknown]
  - Needle issue [Unknown]
  - Ligament sprain [Unknown]
  - Body temperature decreased [Unknown]
  - Musculoskeletal pain [Unknown]
  - Pain in extremity [Unknown]
  - Underdose [Unknown]
  - Blood pressure systolic increased [Unknown]
  - Blood pressure increased [Unknown]
  - Drug hypersensitivity [Unknown]
  - Diarrhoea [Unknown]
  - Inappropriate schedule of product administration [Unknown]
  - Intestinal obstruction [Unknown]
  - Metastases to lung [Unknown]
  - Metastases to lymph nodes [Unknown]
  - Miliaria [Unknown]
  - Pruritus [Unknown]
  - Respiratory tract infection bacterial [Unknown]
  - Urticaria [Unknown]
